FAERS Safety Report 4322148-2 (Version None)
Quarter: 2004Q1

REPORT INFORMATION
  Report Type: 
  Country: None (occurrence: None)
  Receive Date: 20040319
  Receipt Date: 20040312
  Transmission Date: 20041129
  Serious: Yes (Other)
  Sender: FDA-Public Use
  Company Number: HQWYE738718APR03

PATIENT
  Sex: Male

DRUGS (2)
  1. DIMETAPP [Suspect]
     Dosage: ORAL
     Route: 048
     Dates: start: 20000406
  2. BC (ACETYLSALICYLIC ACID/CAFFEINE/SALICYLAMIDE, POWDER) [Suspect]
     Dosage: ORAL
     Route: 048
     Dates: start: 20000406

REACTIONS (1)
  - CEREBROVASCULAR ACCIDENT [None]
